FAERS Safety Report 11236238 (Version 1)
Quarter: 2015Q3

REPORT INFORMATION
  Report Type: Report from Study
  Country: US (occurrence: US)
  Receive Date: 20150702
  Receipt Date: 20150702
  Transmission Date: 20151125
  Serious: Yes (Hospitalization)
  Sender: FDA-Public Use
  Company Number: US-B.I. PHARMACEUTICALS,INC./RIDGEFIELD-2013-BI-42233BI

PATIENT
  Age: 63 Year
  Sex: Male
  Weight: 91.4 kg

DRUGS (9)
  1. BIBF 1120 [Suspect]
     Active Substance: NINTEDANIB
     Indication: IDIOPATHIC PULMONARY FIBROSIS
     Dosage: STRENGTH: 100, DAILY DOSE: 2
     Route: 048
     Dates: start: 20130718, end: 20140219
  2. PLAVIX [Concomitant]
     Active Substance: CLOPIDOGREL BISULFATE
     Indication: HYPERLIPIDAEMIA
     Dosage: 75 MG
     Route: 048
     Dates: start: 200802
  3. ZESTRIL [Concomitant]
     Active Substance: LISINOPRIL
     Indication: HYPERTENSION
     Dosage: 2.5 MG
     Route: 048
     Dates: start: 201001
  4. ZESTRIL [Concomitant]
     Active Substance: LISINOPRIL
     Indication: CARDIAC DISORDER
  5. NORCO [Concomitant]
     Active Substance: ACETAMINOPHEN\HYDROCODONE BITARTRATE
     Indication: PAIN
     Dosage: DAILY DOSE AND DOSE PER APPLICATION: 10-325MG/TAB
     Route: 048
     Dates: start: 20140117
  6. NOVOLOG [Concomitant]
     Active Substance: INSULIN ASPART
     Indication: TYPE 2 DIABETES MELLITUS
     Dosage: ROUTE: INJECT, DAILY DOSE AND DOSE PER APPLICATION: MAX 120 UNITS/DAY
     Route: 050
     Dates: start: 200802
  7. TOPROL XL [Concomitant]
     Active Substance: METOPROLOL SUCCINATE
     Indication: HYPERTENSION
     Dosage: 150 MG
     Route: 048
  8. PLAVIX [Concomitant]
     Active Substance: CLOPIDOGREL BISULFATE
     Indication: CARDIAC FAILURE CONGESTIVE
  9. LANTUS [Concomitant]
     Active Substance: INSULIN GLARGINE
     Indication: TYPE 2 DIABETES MELLITUS
     Dosage: 74 U
     Route: 050
     Dates: start: 200802

REACTIONS (7)
  - Transient ischaemic attack [Recovered/Resolved]
  - Sepsis [Recovered/Resolved]
  - Encephalopathy [Recovered/Resolved]
  - Peripheral arterial occlusive disease [Not Recovered/Not Resolved]
  - Postoperative fever [Recovered/Resolved]
  - Herpes simplex encephalitis [Recovered/Resolved]
  - Peripheral ischaemia [Recovered/Resolved]

NARRATIVE: CASE EVENT DATE: 20131205
